FAERS Safety Report 4507782-9 (Version None)
Quarter: 2004Q4

REPORT INFORMATION
  Report Type: 
  Country: None (occurrence: None)
  Receive Date: 20041123
  Receipt Date: 20041116
  Transmission Date: 20050328
  Serious: Yes (Hospitalization)
  Sender: FDA-Public Use
  Company Number: US-ABBOTT-04P-163-0280926-00

PATIENT
  Sex: Male

DRUGS (5)
  1. VICODIN [Suspect]
     Indication: PAIN
  2. THALIDOMIDE [Suspect]
     Indication: MULTIPLE MYELOMA
     Route: 048
     Dates: start: 20031210
  3. MORPHINE SULFATE [Suspect]
     Indication: PAIN
  4. FENTANYL [Suspect]
     Indication: PAIN
  5. STEROIDS [Concomitant]
     Indication: DRUG USE FOR UNKNOWN INDICATION

REACTIONS (1)
  - CONFUSIONAL STATE [None]
